FAERS Safety Report 7022251-2 (Version None)
Quarter: 2010Q3

REPORT INFORMATION
  Report Type: 
  Country: None (occurrence: None)
  Receive Date: 20100924
  Receipt Date: 20100909
  Transmission Date: 20110219
  Serious: Yes (Hospitalization)
  Sender: FDA-Public Use
  Company Number: 2010003817

PATIENT
  Age: 71 Year
  Sex: Male

DRUGS (16)
  1. TARCEVA [Suspect]
     Indication: LUNG ADENOCARCINOMA
     Dosage: (100 MG, QD), ORAL
     Route: 048
     Dates: start: 20100403
  2. PIOGLITAZONE HCL [Concomitant]
  3. VALSARTAN [Concomitant]
  4. AMARYL [Concomitant]
  5. ZOLPIDEM TARTRATE [Concomitant]
  6. SENNOSIDE [Concomitant]
  7. MAGNESIUM OXIDE (MAGNESIUM OXIDE) [Concomitant]
  8. PHENYTOIN [Concomitant]
  9. MAXIPIME [Concomitant]
  10. LASIX [Concomitant]
  11. ALBUMIN (HUMAN) [Concomitant]
  12. PANTOL (DEXPANTHENOL) [Concomitant]
  13. SOLDACTONE (POTASSIUM CANRENOATE) [Concomitant]
  14. FAMOTIDINE [Concomitant]
  15. NATEGLINIDE [Concomitant]
  16. ALDACTONE [Concomitant]

REACTIONS (7)
  - ASCITES [None]
  - BLOOD PRESSURE DECREASED [None]
  - HYPERPYREXIA [None]
  - INFLAMMATION [None]
  - INTERSTITIAL LUNG DISEASE [None]
  - LYMPHOCYTE COUNT INCREASED [None]
  - PLEURAL EFFUSION [None]
